FAERS Safety Report 9547885 (Version 1)
Quarter: 2013Q3

REPORT INFORMATION
  Report Type: Spontaneous
  Country: US (occurrence: US)
  Receive Date: 20130924
  Receipt Date: 20130924
  Transmission Date: 20140515
  Serious: No
  Sender: FDA-Public Use
  Company Number: US-PURDUE-USA-2012-0081418

PATIENT
  Sex: Male

DRUGS (2)
  1. MORPHINE SULFATE EXTENDED-RELEASE TABLETS (RHODES 74-769, 74-862) [Suspect]
     Indication: ANALGESIC THERAPY
     Dosage: UNK
  2. MORPHINE /00036302/ [Suspect]
     Indication: ANALGESIC THERAPY
     Dosage: UNK

REACTIONS (1)
  - Inadequate analgesia [Unknown]
